FAERS Safety Report 13516573 (Version 1)
Quarter: 2017Q2

REPORT INFORMATION
  Report Type: Spontaneous
  Country: US (occurrence: US)
  Receive Date: 20170505
  Receipt Date: 20170505
  Transmission Date: 20170830
  Serious: No
  Sender: FDA-Public Use
  Company Number: US-LUPIN PHARMACEUTICALS INC.-2017-01510

PATIENT
  Age: 68 Year
  Sex: Female
  Weight: 68.27 kg

DRUGS (4)
  1. PROGESTERONE. [Concomitant]
     Active Substance: PROGESTERONE
     Indication: PRODUCT USED FOR UNKNOWN INDICATION
     Dosage: UNK UNK, QD
     Route: 048
  2. NIACIN EXTENDED RELEASE TABLET USP 1000 MG [Suspect]
     Active Substance: NIACIN
     Indication: BLOOD CHOLESTEROL ABNORMAL
     Dosage: 2000 MG, QD
     Route: 048
     Dates: start: 20170319, end: 20170321
  3. NIACIN EXTENDED RELEASE TABLET USP 1000 MG [Suspect]
     Active Substance: NIACIN
     Dosage: 2000 MG, QD
     Route: 048
     Dates: start: 201703
  4. ESTRADIOL. [Concomitant]
     Active Substance: ESTRADIOL
     Indication: PRODUCT USED FOR UNKNOWN INDICATION
     Dosage: UNK UNK, QD
     Route: 048

REACTIONS (2)
  - Hypertension [Not Recovered/Not Resolved]
  - Headache [Not Recovered/Not Resolved]

NARRATIVE: CASE EVENT DATE: 20170320
